FAERS Safety Report 18278947 (Version 2)
Quarter: 2020Q4

REPORT INFORMATION
  Report Type: Report from Study
  Country: DE (occurrence: DE)
  Receive Date: 20200917
  Receipt Date: 20201028
  Transmission Date: 20210113
  Serious: Yes (Disabling, Other)
  Sender: FDA-Public Use
  Company Number: DE-TEVA-2020-DE-1827436

PATIENT
  Sex: Male
  Weight: 73 kg

DRUGS (26)
  1. METHOTREXAT [Suspect]
     Active Substance: METHOTREXATE
     Indication: PSORIATIC ARTHROPATHY
     Dosage: UNIT DOSE : 7.5 MG, WEEKLY
     Route: 058
     Dates: start: 20180407
  2. METHOTREXAT [Suspect]
     Active Substance: METHOTREXATE
     Indication: PSORIASIS
     Dosage: UNIT DOSE : 5 MILLIGRAM
     Route: 058
     Dates: start: 1980, end: 2017
  3. OPIPRAM [Concomitant]
     Active Substance: OPIPRAMOL HYDROCHLORIDE
     Indication: DEPRESSION
     Dosage: 0.5 AT EVENING, 1 AT NIGHT, UNIT DOSE : 50 MILLIGRAM
     Route: 048
  4. VALSARTAN. [Concomitant]
     Active Substance: VALSARTAN
     Indication: BLOOD PRESSURE MANAGEMENT
     Dosage: UNIT DOSE : 160 MILLIGRAM
  5. HUMIRA [Suspect]
     Active Substance: ADALIMUMAB
     Indication: PSORIASIS
     Dosage: UNIT DOSE : 40 MG, EVERY 2 WEEKS
     Route: 058
     Dates: start: 20130429, end: 201712
  6. METOPROLOL. [Concomitant]
     Active Substance: METOPROLOL
     Indication: BLOOD PRESSURE MANAGEMENT
     Dosage: UNIT DOSE : 100 MILLIGRAM
     Route: 048
  7. TAMSULOSIN [Concomitant]
     Active Substance: TAMSULOSIN
     Indication: PROSTATOMEGALY
     Dosage: UNIT DOSE : 0.4 MILLIGRAM
     Route: 048
  8. VIGANTOL [Concomitant]
     Indication: PROPHYLAXIS
     Dosage: UNIT DOSE : 1000 IU
     Route: 048
  9. ENBREL [Suspect]
     Active Substance: ETANERCEPT
     Indication: PSORIASIS
     Dosage: UNIT DOSE : 50 MG, WEEKLY
     Route: 058
     Dates: start: 201803
  10. DECORTIN H [Concomitant]
     Active Substance: PREDNISOLONE
     Dosage: 5 MILLIGRAM DAILY;
     Route: 048
     Dates: start: 20180425
  11. ALLOPURINOL. [Concomitant]
     Active Substance: ALLOPURINOL
     Indication: BLOOD URIC ACID INCREASED
     Dosage: FREQUENCY-0.5 IN 1 DAY, UNIT DOSE : 300 MILLIGRAM
     Route: 048
  12. OPIPRAM [Concomitant]
     Active Substance: OPIPRAMOL HYDROCHLORIDE
     Indication: SLEEP DISORDER
     Route: 065
  13. ESCITALOPRAM [Concomitant]
     Active Substance: ESCITALOPRAM OXALATE
     Indication: DEPRESSION
     Dosage: 10 GTT, UNIT DOSE : 20 DOSAGE FORMS
     Route: 048
  14. SIMVAHEXAL [Concomitant]
     Active Substance: SIMVASTATIN
     Indication: PRODUCT USED FOR UNKNOWN INDICATION
     Route: 048
  15. FOLIC ACID. [Concomitant]
     Active Substance: FOLIC ACID
     Indication: DRUG THERAPY
     Dosage: UNIT DOSE : 5 MILLIGRAM
     Route: 048
  16. ENBREL [Suspect]
     Active Substance: ETANERCEPT
     Indication: PSORIATIC ARTHROPATHY
  17. BEN-U-RON [Concomitant]
     Active Substance: ACETAMINOPHEN
     Indication: PAIN
     Dosage: UNIT DOSE : 1000 MILLIGRAM
     Route: 048
  18. METOPROLOL. [Concomitant]
     Active Substance: METOPROLOL
     Indication: BLOOD PRESSURE MANAGEMENT
     Dosage: FREQUENCY-0.5-1 DAY, UNIT DOSE : 50 MILLIGRAM
     Route: 048
  19. HUMIRA [Suspect]
     Active Substance: ADALIMUMAB
     Dosage: UNIT DOSE : 40 MG, EVERY 2 WEEKS
     Route: 058
     Dates: end: 20180314
  20. DECORTIN H [Concomitant]
     Active Substance: PREDNISOLONE
     Indication: PSORIATIC ARTHROPATHY
     Dosage: 7.5 MILLIGRAM DAILY;
     Route: 048
  21. ASPIRIN PROTECT [Concomitant]
     Active Substance: ASPIRIN
     Indication: PRODUCT USED FOR UNKNOWN INDICATION
     Dosage: 100 MILLIGRAM DAILY;
     Route: 048
  22. COLCHICUM [Concomitant]
     Active Substance: COLCHICINE
     Dosage: 1 MILLIGRAM DAILY;
     Route: 048
  23. DUROGESIC [Concomitant]
     Active Substance: FENTANYL
     Indication: PAIN
     Dosage: UNIT DOSE : 7.5 MICROGRAM/H
     Route: 062
  24. HCT [Concomitant]
     Active Substance: HYDROCHLOROTHIAZIDE
     Indication: BLOOD PRESSURE MANAGEMENT
     Route: 048
  25. COLCHICUM [Concomitant]
     Active Substance: COLCHICINE
     Indication: CHONDROCALCINOSIS PYROPHOSPHATE
     Dosage: .5 MILLIGRAM DAILY;
     Route: 048
  26. ESOMEPRAZOL [Concomitant]
     Active Substance: ESOMEPRAZOLE
     Indication: PROPHYLAXIS
     Dosage: UNIT DOSE : 40 MILLIGRAM
     Route: 048

REACTIONS (18)
  - Arthralgia [Unknown]
  - Night sweats [Unknown]
  - Drug ineffective [Unknown]
  - Musculoskeletal stiffness [Recovered/Resolved]
  - Condition aggravated [Unknown]
  - Panic attack [Unknown]
  - Insomnia [Not Recovered/Not Resolved]
  - Neoplasm [Unknown]
  - Drug ineffective [Unknown]
  - Joint swelling [Unknown]
  - Arthropathy [Not Recovered/Not Resolved]
  - Rash [Unknown]
  - Weight decreased [Recovered/Resolved]
  - Initial insomnia [Not Recovered/Not Resolved]
  - Fatigue [Not Recovered/Not Resolved]
  - Musculoskeletal discomfort [Unknown]
  - Psoriasis [Unknown]
  - Pain [Unknown]

NARRATIVE: CASE EVENT DATE: 201606
